FAERS Safety Report 13261346 (Version 1)
Quarter: 2017Q1

REPORT INFORMATION
  Report Type: Spontaneous
  Country: US (occurrence: US)
  Receive Date: 20170222
  Receipt Date: 20170222
  Transmission Date: 20170428
  Serious: Yes (Other)
  Sender: FDA-Public Use
  Company Number: US-BAYER-2017-028013

PATIENT
  Age: 25 Year
  Sex: Female

DRUGS (4)
  1. ALKA-SELTZER PLUS COLD FORMULA DAY/NIGHT EFFERVESCENT COMBI NIGHT (ASPIRIN\DEXTROMETHORPHAN\DOXYLAMINE\PHENYLEPHRINE) [Suspect]
     Active Substance: ASPIRIN\DEXTROMETHORPHAN\DOXYLAMINE\PHENYLEPHRINE
     Indication: NASOPHARYNGITIS
  2. ALKA-SELTZER PLUS DAY AND NIGHT MULTI-SYMPTOM COLD AND FLU FORMULA [Suspect]
     Active Substance: ACETAMINOPHEN\DEXTROMETHORPHAN HYDROBROMIDE\DOXYLAMINE SUCCINATE\PHENYLEPHRINE
     Indication: NASOPHARYNGITIS
  3. ALKA-SELTZER PLUS COLD FORMULA DAY/NIGHT EFFERVESCENT COMBI NIGHT (ASPIRIN\DEXTROMETHORPHAN\DOXYLAMINE\PHENYLEPHRINE) [Suspect]
     Active Substance: ASPIRIN\DEXTROMETHORPHAN\DOXYLAMINE\PHENYLEPHRINE
     Indication: HYPERSENSITIVITY
     Dosage: 2 EFFERVESCENT TABS PER USE
     Route: 048
  4. ALKA-SELTZER PLUS DAY AND NIGHT MULTI-SYMPTOM COLD AND FLU FORMULA [Suspect]
     Active Substance: ACETAMINOPHEN\DEXTROMETHORPHAN HYDROBROMIDE\DOXYLAMINE SUCCINATE\PHENYLEPHRINE
     Indication: HYPERSENSITIVITY
     Dosage: UNK
     Route: 048

REACTIONS (3)
  - Patient dissatisfaction with treatment [None]
  - Retching [Recovered/Resolved]
  - Choking [Unknown]
